FAERS Safety Report 6239350-5 (Version None)
Quarter: 2009Q2

REPORT INFORMATION
  Report Type: 
  Country: None (occurrence: None)
  Receive Date: 20090622
  Receipt Date: 20090611
  Transmission Date: 20091009
  Serious: Yes (Other)
  Sender: FDA-Public Use
  Company Number: DE-PFIZER INC-2009200475

PATIENT
  Age: 68 Year

DRUGS (2)
  1. AROMASIN [Suspect]
     Indication: BREAST CANCER RECURRENT
     Dosage: 25 MG, 1X/DAY
     Route: 048
     Dates: start: 20090212
  2. IBANDRONIC ACID [Concomitant]
     Indication: METASTASES TO BONE
     Dosage: UNK
     Route: 042

REACTIONS (7)
  - ARTHRALGIA [None]
  - CARPAL TUNNEL SYNDROME [None]
  - CATHETER THROMBOSIS [None]
  - DEPRESSED MOOD [None]
  - HYPERHIDROSIS [None]
  - OEDEMA PERIPHERAL [None]
  - PARAESTHESIA [None]
